FAERS Safety Report 5206971-8 (Version None)
Quarter: 2007Q1

REPORT INFORMATION
  Report Type: 
  Country: None (occurrence: None)
  Receive Date: 20070105
  Receipt Date: 20070105
  Transmission Date: 20070707
  Serious: Yes (Life-Threatening, Hospitalization, Disabling)
  Sender: FDA-Public Use
  Company Number: None

PATIENT
  Age: 74 Year
  Sex: Male
  Weight: 72.5755 kg

DRUGS (1)
  1. ALDARA [Suspect]
     Indication: BASAL CELL CARCINOMA
     Dosage: COVERED SPECIFIED AREA DAILY TOP
     Route: 061
     Dates: start: 20060509, end: 20061110

REACTIONS (2)
  - LYMPHOMA [None]
  - SQUAMOUS CELL CARCINOMA [None]
